FAERS Safety Report 11248981 (Version 1)
Quarter: 2015Q3

REPORT INFORMATION
  Report Type: Spontaneous
  Country: US (occurrence: US)
  Receive Date: 20150708
  Receipt Date: 20150708
  Transmission Date: 20151125
  Serious: No
  Sender: FDA-Public Use
  Company Number: US-ELI_LILLY_AND_COMPANY-US200701005380

PATIENT
  Sex: Male

DRUGS (6)
  1. VITAMIN B12 [Concomitant]
     Active Substance: CYANOCOBALAMIN
     Dosage: 1000 UNK, UNK
     Route: 030
     Dates: start: 20070111
  2. ALIMTA [Suspect]
     Active Substance: PEMETREXED DISODIUM
     Indication: LUNG NEOPLASM MALIGNANT
     Dosage: 840 MG, UNK
     Route: 042
     Dates: start: 20070123, end: 20070123
  3. FOLIC ACID. [Concomitant]
     Active Substance: FOLIC ACID
     Dosage: 400 UG, UNK
     Route: 048
     Dates: start: 20070111
  4. CORTICOSTEROID NOS [Concomitant]
     Active Substance: CORTICOSTEROID NOS
     Dosage: 4 MG, OTHER
     Route: 048
     Dates: start: 20070212
  5. ALIMTA [Suspect]
     Active Substance: PEMETREXED DISODIUM
     Dosage: 840 MG, UNK
     Route: 042
     Dates: start: 2007, end: 20070508
  6. CORTICOSTEROID NOS [Concomitant]
     Active Substance: CORTICOSTEROID NOS
     Dosage: 8 MG, UNKNOWN
     Route: 042
     Dates: start: 20070123, end: 2007

REACTIONS (3)
  - Urticaria [Recovered/Resolved]
  - Throat irritation [Recovered/Resolved]
  - Hot flush [Recovered/Resolved]

NARRATIVE: CASE EVENT DATE: 20070123
